FAERS Safety Report 7990771-X (Version None)
Quarter: 2011Q4

REPORT INFORMATION
  Report Type: 
  Country: None (occurrence: None)
  Receive Date: 20111215
  Receipt Date: 20111130
  Transmission Date: 20120403
  Serious: Yes (Other)
  Sender: FDA-Public Use
  Company Number: 20110838

PATIENT
  Age: 55 Year
  Sex: Female

DRUGS (1)
  1. LIDOCAINE HCL [Suspect]
     Dosage: EPIDURAL
     Route: 008
     Dates: start: 20110909

REACTIONS (4)
  - EXTRADURAL ABSCESS [None]
  - ABSCESS BACTERIAL [None]
  - PRODUCT QUALITY ISSUE [None]
  - INJECTION SITE ABSCESS [None]
